FAERS Safety Report 12543432 (Version 1)
Quarter: 2016Q3

REPORT INFORMATION
  Report Type: Spontaneous
  Country: US (occurrence: US)
  Receive Date: 20160711
  Receipt Date: 20160711
  Transmission Date: 20161109
  Serious: No
  Sender: FDA-Public Use
  Company Number: US-TEVA-628084USA

PATIENT
  Sex: Male

DRUGS (5)
  1. TURMERIC [Concomitant]
     Active Substance: TURMERIC
     Indication: SUPPLEMENTATION THERAPY
     Dosage: 1 TEASPOON EVERY NIGHT
  2. CURRY [Concomitant]
     Indication: SUPPLEMENTATION THERAPY
     Dosage: ONE TEASPOON NIGHTLY
  3. CAYENNE PEPPER [Concomitant]
     Active Substance: CAPSICUM
     Indication: SUPPLEMENTATION THERAPY
     Dosage: ONE TEASPOON NIGHTLY
  4. VENLAFAXINE [Suspect]
     Active Substance: VENLAFAXINE HYDROCHLORIDE
     Indication: MAJOR DEPRESSION
     Dosage: 150 MILLIGRAM DAILY;
     Route: 048
     Dates: start: 2009
  5. GARLIC. [Concomitant]
     Active Substance: GARLIC
     Indication: SUPPLEMENTATION THERAPY
     Dosage: EATS CLOVES NIGHTLY

REACTIONS (6)
  - Abnormal behaviour [Recovered/Resolved]
  - Screaming [Recovered/Resolved]
  - Panic reaction [Recovered/Resolved]
  - Feeling jittery [Recovered/Resolved]
  - Nervousness [Recovered/Resolved]
  - Feeling abnormal [Recovered/Resolved]

NARRATIVE: CASE EVENT DATE: 2013
